FAERS Safety Report 9161882 (Version 1)
Quarter: 2013Q1

REPORT INFORMATION
  Report Type: Spontaneous
  Country: US (occurrence: None)
  Receive Date: 20130220
  Receipt Date: 20130220
  Transmission Date: 20140127
  Serious: Yes (Other)
  Sender: FDA-Public Use
  Company Number: AUR-APL-2013-01482

PATIENT
  Age: 65 Year
  Sex: Male
  Weight: 156.2 kg

DRUGS (2)
  1. METFORMIN (METFORMIN) [Suspect]
     Indication: TYPE 2 DIABETES MELLITUS
  2. INSULIN [Suspect]
     Indication: TYPE 2 DIABETES MELLITUS

REACTIONS (2)
  - Diabetes mellitus inadequate control [None]
  - Glycosylated haemoglobin increased [None]
